FAERS Safety Report 10165060 (Version 1)
Quarter: 2014Q2

REPORT INFORMATION
  Report Type: Spontaneous
  Country: US (occurrence: US)
  Receive Date: 20140510
  Receipt Date: 20140510
  Transmission Date: 20141212
  Serious: No
  Sender: FDA-Public Use
  Company Number: US-BRISTOL-MYERS SQUIBB COMPANY-19695741

PATIENT
  Age: 55 Year
  Sex: Male
  Weight: 72.56 kg

DRUGS (2)
  1. BYDUREON [Suspect]
     Indication: TYPE 2 DIABETES MELLITUS
     Route: 058
  2. VICTOZA [Concomitant]

REACTIONS (2)
  - Injection site nodule [Recovering/Resolving]
  - Injection site pruritus [Unknown]
